FAERS Safety Report 12756376 (Version 1)
Quarter: 2016Q3

REPORT INFORMATION
  Report Type: Report from Study
  Country: ZA (occurrence: ZA)
  Receive Date: 20160916
  Receipt Date: 20160916
  Transmission Date: 20161109
  Serious: Yes (Hospitalization, Other)
  Sender: FDA-Public Use
  Company Number: ZA-GILEAD-2016-0232780

PATIENT
  Age: 50 Year
  Sex: Female
  Weight: 53.5 kg

DRUGS (1)
  1. EFAVIRENZ/EMTRICITABINE/TENOFOVIR DISOPROXIL FUMARATE [Suspect]
     Active Substance: EFAVIRENZ\EMTRICITABINE\TENOFOVIR DISOPROXIL FUMARATE
     Indication: HIV INFECTION
     Dosage: 1 DF, QD
     Route: 048
     Dates: start: 20130809

REACTIONS (1)
  - Tuberculosis [Recovered/Resolved with Sequelae]

NARRATIVE: CASE EVENT DATE: 20160323
